FAERS Safety Report 9373942 (Version 1)
Quarter: 2013Q2

REPORT INFORMATION
  Report Type: Spontaneous
  Country: US (occurrence: US)
  Receive Date: 20130628
  Receipt Date: 20130628
  Transmission Date: 20140414
  Serious: Yes (Hospitalization)
  Sender: FDA-Public Use
  Company Number: US-SHIRE-ALL1-2013-04252

PATIENT
  Age: 10 Year
  Sex: Male
  Weight: 29.5 kg

DRUGS (6)
  1. ADDERALL XR [Suspect]
     Indication: ATTENTION DEFICIT/HYPERACTIVITY DISORDER
     Dosage: 30 MG, UNKNOWN
     Route: 048
     Dates: start: 20130213, end: 20130426
  2. ADDERALL XR [Suspect]
     Dosage: 25 MG, 1X/DAY:QD
     Route: 048
  3. MENINGOCOCCAL CONJUGATE [Suspect]
     Indication: IMMUNISATION
     Dosage: UNK
     Dates: start: 20130327, end: 20130327
  4. CLONIDINE HYDROCHLORIDE [Concomitant]
     Indication: ATTENTION DEFICIT/HYPERACTIVITY DISORDER
     Dosage: UNK, 1X/DAY:QD
     Route: 065
     Dates: start: 2009
  5. ALBUTEROL [Concomitant]
     Indication: ASTHMA
     Dosage: UNK, AS REQ^D
     Route: 065
     Dates: start: 20070730
  6. MIRALAX [Concomitant]
     Indication: CONSTIPATION
     Dosage: 30MG, 1X/DAY:QD
     Route: 065
     Dates: start: 20130213

REACTIONS (2)
  - Post-traumatic stress disorder [Recovering/Resolving]
  - Physical assault [Recovered/Resolved]
